FAERS Safety Report 7356612-9 (Version None)
Quarter: 2011Q1

REPORT INFORMATION
  Report Type: 
  Country: None (occurrence: None)
  Receive Date: 20110316
  Receipt Date: 20110303
  Transmission Date: 20110831
  Serious: Yes (Other)
  Sender: FDA-Public Use
  Company Number: PHHY2011US05419

PATIENT
  Sex: Male

DRUGS (3)
  1. EXJADE [Suspect]
     Indication: MYELOFIBROSIS
     Dosage: 1500 MG, DAILY
     Route: 048
     Dates: start: 20101214, end: 20101228
  2. EXJADE [Suspect]
     Dosage: 500 MG, DAILY
     Route: 048
     Dates: start: 20110106
  3. HYDREA [Concomitant]
     Indication: MYELOFIBROSIS
     Dosage: 500 MG, UNK
     Dates: start: 20091104

REACTIONS (7)
  - URINARY INCONTINENCE [None]
  - DIARRHOEA [None]
  - MALAISE [None]
  - DEHYDRATION [None]
  - POLLAKIURIA [None]
  - ASTHENIA [None]
  - HEPATIC ENZYME INCREASED [None]
